FAERS Safety Report 14699893 (Version 1)
Quarter: 2018Q1

REPORT INFORMATION
  Report Type: Spontaneous
  Country: US (occurrence: US)
  Receive Date: 20180329
  Receipt Date: 20180329
  Transmission Date: 20180509
  Serious: Yes (Life-Threatening)
  Sender: FDA-Public Use
  Company Number: None

PATIENT
  Age: 36 Year
  Sex: Male
  Weight: 90 kg

DRUGS (2)
  1. HALDOL DECANOATE [Suspect]
     Active Substance: HALOPERIDOL DECANOATE
     Route: 030
  2. HALOPERIDOL TABLET [Suspect]
     Active Substance: HALOPERIDOL
     Dosage: QUANTITY:1 TABLET(S); AT BEDTIME?
     Route: 030

REACTIONS (1)
  - Throat tightness [None]

NARRATIVE: CASE EVENT DATE: 20180210
